FAERS Safety Report 4923902-6 (Version None)
Quarter: 2006Q1

REPORT INFORMATION
  Report Type: 
  Country: None (occurrence: None)
  Receive Date: 20060221
  Receipt Date: 20060209
  Transmission Date: 20060701
  Serious: Yes (Hospitalization)
  Sender: FDA-Public Use
  Company Number: 2005134631

PATIENT
  Age: 33 Year
  Sex: Male

DRUGS (1)
  1. MANSIL (OXAMNIQUINE) [Suspect]
     Indication: SCHISTOSOMIASIS
     Dosage: 250 MG, ORAL
     Route: 048
     Dates: start: 20050918, end: 20050919

REACTIONS (7)
  - CONSTIPATION [None]
  - DIARRHOEA [None]
  - DRUG DISPENSING ERROR [None]
  - DRUG PRESCRIBING ERROR [None]
  - HELMINTHIC INFECTION [None]
  - LUNG DISORDER [None]
  - LUNG NEOPLASM [None]
